FAERS Safety Report 9449926 (Version 3)
Quarter: 2013Q3

REPORT INFORMATION
  Report Type: Spontaneous
  Country: US (occurrence: US)
  Receive Date: 20130809
  Receipt Date: 20130828
  Transmission Date: 20140515
  Serious: Yes (Hospitalization, Other)
  Sender: FDA-Public Use
  Company Number: US-JNJFOC-20130801406

PATIENT
  Sex: 0

DRUGS (2)
  1. INFLIXIMAB, RECOMBINANT [Suspect]
     Indication: COLITIS ULCERATIVE
     Route: 065
  2. MESALAMINE [Concomitant]
     Route: 065

REACTIONS (4)
  - Colitis ulcerative [Unknown]
  - Infection [Unknown]
  - Post procedural complication [Unknown]
  - Neoplasm malignant [Unknown]
